FAERS Safety Report 15833311 (Version 1)
Quarter: 2019Q1

REPORT INFORMATION
  Report Type: Spontaneous
  Country: US (occurrence: US)
  Receive Date: 20190116
  Receipt Date: 20190116
  Transmission Date: 20190417
  Serious: No
  Sender: FDA-Public Use
  Company Number: US-OPTINOSE US, INC.-US-2018OPT000247

PATIENT
  Age: 41 Year
  Sex: Male

DRUGS (3)
  1. XHANCE [Suspect]
     Active Substance: FLUTICASONE PROPIONATE
     Indication: NASAL POLYPS
     Dosage: 372 ?G, QD (2 SPRAYS EACH NOSTRIL QD)
     Route: 045
     Dates: start: 20180823, end: 2018
  2. BUDESONIDE. [Concomitant]
     Active Substance: BUDESONIDE
     Indication: NASAL CONGESTION
     Dosage: USES FOR A WEEK AT A TIME
     Route: 045
  3. XHANCE [Suspect]
     Active Substance: FLUTICASONE PROPIONATE
     Dosage: 372 ?G, QD (2 SPRAYS EACH NOSTRIL QD, FOR A FEW DAYS AT A TIME)
     Route: 045
     Dates: start: 2018

REACTIONS (4)
  - Inappropriate schedule of product administration [Unknown]
  - Nasal discomfort [Unknown]
  - Nasal polyps [Unknown]
  - Nasal congestion [Unknown]

NARRATIVE: CASE EVENT DATE: 201808
